FAERS Safety Report 8566192-8 (Version None)
Quarter: 2012Q3

REPORT INFORMATION
  Report Type: 
  Country: None (occurrence: None)
  Receive Date: 20120803
  Receipt Date: 20111017
  Transmission Date: 20120928
  Serious: No
  Sender: FDA-Public Use
  Company Number: US-ABBOTT-11P-163-0865375-00

PATIENT
  Sex: Male
  Weight: 86.26 kg

DRUGS (6)
  1. FISH OIL [Concomitant]
     Indication: PRODUCT USED FOR UNKNOWN INDICATION
  2. ASPIRIN [Concomitant]
     Indication: PRODUCT USED FOR UNKNOWN INDICATION
     Dosage: IN THE MORNING
  3. NIASPAN [Suspect]
     Indication: LOW DENSITY LIPOPROTEIN INCREASED
     Dates: start: 20091001
  4. NIASPAN [Suspect]
     Dosage: AT BEDTIME
  5. NIASPAN [Suspect]
     Indication: CORONARY ARTERY OCCLUSION
  6. SIMVASTATIN [Concomitant]
     Indication: PRODUCT USED FOR UNKNOWN INDICATION

REACTIONS (5)
  - SOMNOLENCE [None]
  - ERYTHEMA [None]
  - FATIGUE [None]
  - FLUSHING [None]
  - RASH [None]
